FAERS Safety Report 6060516-1 (Version None)
Quarter: 2009Q1

REPORT INFORMATION
  Report Type: 
  Country: None (occurrence: None)
  Receive Date: 20090202
  Receipt Date: 20090120
  Transmission Date: 20090719
  Serious: No
  Sender: FDA-Public Use
  Company Number: US-BAYER-200841109NA

PATIENT
  Age: 27 Year

DRUGS (1)
  1. MAGNEVIST [Suspect]
     Indication: HEADACHE
     Dosage: TOTAL DAILY DOSE: 20 ML  UNIT DOSE: 100 ML
     Dates: start: 20081217, end: 20081217

REACTIONS (3)
  - COUGH [None]
  - NAUSEA [None]
  - VOMITING [None]
